FAERS Safety Report 6294771-X (Version None)
Quarter: 2009Q3

REPORT INFORMATION
  Report Type: 
  Country: None (occurrence: None)
  Receive Date: 20090730
  Receipt Date: 20080729
  Transmission Date: 20100115
  Serious: No
  Sender: FDA-Public Use
  Company Number: 2008-1165

PATIENT
  Age: 30 Year
  Sex: Male
  Weight: 104.3 kg

DRUGS (4)
  1. LANREOTIDE AUTOGEL (LANREOTIDE) (LANREOTIDE ACETATE) [Suspect]
     Dosage: 120 MG, 1 IN 1 M) SUBCUTANEOUS
     Route: 058
     Dates: start: 20080701
  2. NEXIUM [Concomitant]
  3. CABERLINE (ALL OTHER THERAPEUTIC PRODUCTS) [Concomitant]
  4. TESTOSTERONE INJECTIONS (TESTOSTERONE) [Concomitant]

REACTIONS (2)
  - DRUG INEFFECTIVE [None]
  - THERAPEUTIC RESPONSE UNEXPECTED [None]
